FAERS Safety Report 15656240 (Version 2)
Quarter: 2018Q4

REPORT INFORMATION
  Report Type: Spontaneous
  Country: US (occurrence: US)
  Receive Date: 20181126
  Receipt Date: 20181206
  Transmission Date: 20190205
  Serious: Yes (Hospitalization)
  Sender: FDA-Public Use
  Company Number: US-LPDUSPRD-20182195

PATIENT
  Age: 63 Year
  Sex: Male

DRUGS (1)
  1. TRANEXAMIC ACID INJECTION(0517-0960-01) [Suspect]
     Active Substance: TRANEXAMIC ACID
     Dosage: 200 MG
     Route: 037

REACTIONS (4)
  - Myoclonus [Recovered/Resolved]
  - Incorrect route of product administration [Unknown]
  - Accidental exposure to product [Unknown]
  - Wrong product administered [Unknown]
